FAERS Safety Report 9461080 (Version 2)
Quarter: 2013Q4

REPORT INFORMATION
  Report Type: Spontaneous
  Country: CM (occurrence: CM)
  Receive Date: 20130816
  Receipt Date: 20131021
  Transmission Date: 20140711
  Serious: Yes (Other)
  Sender: FDA-Public Use
  Company Number: CM-009507513-1308CMR006391

PATIENT
  Age: 8 Year
  Sex: Male

DRUGS (2)
  1. MECTIZAN [Suspect]
     Indication: FILARIASIS LYMPHATIC
     Dosage: 1 TABLET DAILY
     Route: 048
     Dates: start: 20130714
  2. ALBENDAZOLE [Suspect]
     Indication: FILARIASIS LYMPHATIC
     Dosage: 1 TABLET
     Route: 048
     Dates: start: 20130714

REACTIONS (3)
  - Stevens-Johnson syndrome [Recovered/Resolved]
  - Dermatitis bullous [Recovered/Resolved]
  - Skin ulcer [Recovered/Resolved]
